FAERS Safety Report 10030591 (Version 1)
Quarter: 2014Q1

REPORT INFORMATION
  Report Type: Spontaneous
  Country: US (occurrence: US)
  Receive Date: 20140323
  Receipt Date: 20140323
  Transmission Date: 20141002
  Serious: No
  Sender: FDA-Public Use
  Company Number: US-ALLERGAN-1319111US

PATIENT
  Age: 48 Year
  Sex: Female

DRUGS (6)
  1. LATISSE 0.03% [Suspect]
     Indication: GROWTH OF EYELASHES
     Dosage: 2 GTT, QHS
     Dates: start: 201304
  2. REWETTING DROPS NOS [Concomitant]
     Indication: PRODUCT USED FOR UNKNOWN INDICATION
     Dosage: UNK UNK, PRN
     Route: 047
  3. ALLEGRA [Concomitant]
     Indication: HYPERSENSITIVITY
     Dosage: UNK
  4. SALINE MIST [Concomitant]
     Indication: HYPERSENSITIVITY
     Dosage: UNK
  5. ADVIL                              /00044201/ [Concomitant]
     Indication: SINUS HEADACHE
     Dosage: UNK
  6. ALEVE [Concomitant]
     Indication: SINUS HEADACHE
     Dosage: UNK

REACTIONS (3)
  - Wrong technique in drug usage process [Unknown]
  - Trichorrhexis [Unknown]
  - Eyelids pruritus [Recovered/Resolved]
